FAERS Safety Report 9580401 (Version 1)
Quarter: 2013Q4

REPORT INFORMATION
  Report Type: Report from Study
  Country: US (occurrence: US)
  Receive Date: 20131002
  Receipt Date: 20131002
  Transmission Date: 20140711
  Serious: Yes (Hospitalization, Other)
  Sender: FDA-Public Use
  Company Number: US-NAPPMUNDI-USA-2013-0106855

PATIENT
  Age: 73 Year
  Sex: Male
  Weight: 79.37 kg

DRUGS (11)
  1. OXYCONTIN (NDA 22-272) [Suspect]
     Indication: APPENDICITIS PERFORATED
     Dosage: UNK
     Dates: start: 201303
  2. OXYCONTIN (NDA 22-272) [Suspect]
     Indication: PAIN
  3. HUMIRA [Suspect]
     Indication: PSORIATIC ARTHROPATHY
     Dosage: UNK
     Dates: start: 2011
  4. COZAAR [Suspect]
     Indication: PRODUCT USED FOR UNKNOWN INDICATION
  5. LOPRESSOR [Suspect]
     Indication: PRODUCT USED FOR UNKNOWN INDICATION
  6. METHOTREXATE [Concomitant]
     Indication: PSORIATIC ARTHROPATHY
     Dosage: UNK
     Dates: start: 201306
  7. SYNTHROID [Concomitant]
     Indication: HYPOTHYROIDISM
  8. PRILOSEC                           /00661201/ [Concomitant]
     Indication: BARRETT^S OESOPHAGUS
  9. FOLIC ACID [Concomitant]
     Indication: PRODUCT USED FOR UNKNOWN INDICATION
  10. CRESTOR [Concomitant]
     Indication: BLOOD CHOLESTEROL
  11. VITRON C [Concomitant]
     Indication: VITAMIN SUPPLEMENTATION

REACTIONS (5)
  - Sepsis [Recovered/Resolved]
  - Abscess intestinal [Recovered/Resolved]
  - Confusional state [Recovered/Resolved]
  - Loss of consciousness [Recovered/Resolved]
  - Hypotension [Recovered/Resolved]
